FAERS Safety Report 7944619-X (Version None)
Quarter: 2011Q4

REPORT INFORMATION
  Report Type: 
  Country: None (occurrence: None)
  Receive Date: 20111129
  Receipt Date: 20111121
  Transmission Date: 20120403
  Serious: Yes (Hospitalization)
  Sender: FDA-Public Use
  Company Number: JP-JNJFOC-20111001506

PATIENT
  Age: 84 Year
  Sex: Male

DRUGS (3)
  1. ZOSYN [Suspect]
     Indication: PNEUMONIA
     Route: 041
     Dates: start: 20110831, end: 20110901
  2. UNASYN [Suspect]
     Indication: PNEUMONIA
     Route: 041
     Dates: start: 20110908, end: 20110915
  3. DORIPENEM MONOHYDRATE [Suspect]
     Indication: PNEUMONIA
     Route: 041
     Dates: start: 20110902, end: 20110907

REACTIONS (2)
  - LIVER DISORDER [None]
  - JAUNDICE [None]
